FAERS Safety Report 21916299 (Version 1)
Quarter: 2023Q1

REPORT INFORMATION
  Report Type: Spontaneous
  Country: CA (occurrence: CA)
  Receive Date: 20230126
  Receipt Date: 20230126
  Transmission Date: 20230417
  Serious: Yes (Hospitalization, Other)
  Sender: FDA-Public Use
  Company Number: CA-ORGANON-O2203CAN000521

PATIENT
  Age: 34 Year
  Sex: Male

DRUGS (19)
  1. SINGULAIR [Suspect]
     Active Substance: MONTELUKAST SODIUM
     Indication: Product used for unknown indication
     Dosage: 10.0 MILLIGRAM
     Route: 065
  2. SINGULAIR [Suspect]
     Active Substance: MONTELUKAST SODIUM
     Dosage: 1 EVERY 1 DAYS (DOSAGE FORM: NOT SPECIFIED)
     Route: 065
  3. FLUTICASONE FUROATE [Suspect]
     Active Substance: FLUTICASONE FUROATE
     Indication: Product used for unknown indication
     Dosage: 2 EVERY 1 DAYS
     Route: 065
  4. FLUTICASONE FUROATE [Suspect]
     Active Substance: FLUTICASONE FUROATE
     Dosage: 20 MILLIGRAM, 2 EVERY 1 DAYS (BID)
     Route: 065
  5. BILASTINE [Suspect]
     Active Substance: BILASTINE
     Indication: Product used for unknown indication
     Dosage: 20.0 MILLIGRAM
     Route: 065
  6. BILASTINE [Suspect]
     Active Substance: BILASTINE
     Dosage: 20.0 MILLIGRAM (DOSAGE FORM: NOT SPECIFIED)
     Route: 065
  7. BUDESONIDE\FORMOTEROL FUMARATE [Suspect]
     Active Substance: BUDESONIDE\FORMOTEROL FUMARATE
     Indication: Product used for unknown indication
     Dosage: 2 DOSAGE FORM, 3 EVERY 1 DAYS (TID)
  8. BUDESONIDE\FORMOTEROL FUMARATE [Suspect]
     Active Substance: BUDESONIDE\FORMOTEROL FUMARATE
     Dosage: 2 DOSAGE FORM, 3 EVERY 1 DAYS
  9. BUDESONIDE\FORMOTEROL FUMARATE [Suspect]
     Active Substance: BUDESONIDE\FORMOTEROL FUMARATE
     Dosage: 1 EVERY 1 DAYS (DOSAGE FORM: NOT SPECIFED)
     Route: 065
  10. GLYCOPYRROLATE [Suspect]
     Active Substance: GLYCOPYRROLATE
     Indication: Product used for unknown indication
     Dosage: UNK
     Route: 065
  11. PREDNISONE [Suspect]
     Active Substance: PREDNISONE
     Indication: Product used for unknown indication
     Dosage: UNK (DOSAGE FORM: NOT REPORTED)
     Route: 065
  12. PREDNISONE [Suspect]
     Active Substance: PREDNISONE
     Dosage: 40 MILLIGRAM
     Route: 065
  13. ALBUTEROL SULFATE [Suspect]
     Active Substance: ALBUTEROL SULFATE
     Indication: Product used for unknown indication
     Dosage: 2.5 MICROGRAM, 1 EVERY 1 DAY (DOSAGE FORM: NOT SPECIFIED)
  14. SPIRIVA [Suspect]
     Active Substance: TIOTROPIUM BROMIDE MONOHYDRATE
     Indication: Product used for unknown indication
     Dosage: 2.5 MICROGRAM, 1 IN EVERY 1 DAYS (DOSAGE FORM: NOT SPECIFIED
  15. SPIRIVA [Suspect]
     Active Substance: TIOTROPIUM BROMIDE MONOHYDRATE
     Dosage: 1 EVERY 1 DAYS (QD) (DOSAGE FORM: NOT SPECIFIED)
  16. SPIRIVA [Suspect]
     Active Substance: TIOTROPIUM BROMIDE MONOHYDRATE
     Dosage: UNK (DOSAGE FORM: NOT SPECIFIED)
     Route: 065
  17. TIOTROPIUM BROMIDE [Suspect]
     Active Substance: TIOTROPIUM BROMIDE
     Indication: Product used for unknown indication
     Dosage: 1 IN EVERY 1 DAYS (QD)
  18. NUCALA [Concomitant]
     Active Substance: MEPOLIZUMAB
     Indication: Asthma
     Dosage: 100.0 MILLIGRAM
     Route: 042
  19. NUCALA [Concomitant]
     Active Substance: MEPOLIZUMAB
     Dosage: UNK

REACTIONS (10)
  - Asthma [Not Recovered/Not Resolved]
  - Chest discomfort [Not Recovered/Not Resolved]
  - Dyspnoea [Not Recovered/Not Resolved]
  - Full blood count abnormal [Not Recovered/Not Resolved]
  - Loss of personal independence in daily activities [Not Recovered/Not Resolved]
  - Sleep apnoea syndrome [Not Recovered/Not Resolved]
  - Sleep disorder due to a general medical condition [Not Recovered/Not Resolved]
  - Therapeutic product effect incomplete [Not Recovered/Not Resolved]
  - Wheezing [Not Recovered/Not Resolved]
  - Cough [Not Recovered/Not Resolved]
